FAERS Safety Report 4307279-5 (Version None)
Quarter: 2004Q1

REPORT INFORMATION
  Report Type: 
  Country: None (occurrence: None)
  Receive Date: 20040227
  Receipt Date: 20030411
  Transmission Date: 20041129
  Serious: Yes (Hospitalization, Disabling)
  Sender: FDA-Public Use
  Company Number: WAES 0304USA01400

PATIENT
  Age: 46 Year
  Sex: Female
  Weight: 80 kg

DRUGS (2)
  1. VIOXX [Suspect]
     Indication: OSTEOARTHRITIS
     Route: 048
     Dates: start: 20010101, end: 20010201
  2. VIOXX [Suspect]
     Indication: RHEUMATOID ARTHRITIS
     Route: 048
     Dates: start: 20010101, end: 20010201

REACTIONS (29)
  - ANTIBODY TEST POSITIVE [None]
  - CENTRAL NERVOUS SYSTEM NEOPLASM [None]
  - COCCIDIOIDOMYCOSIS [None]
  - EMOTIONAL DISORDER [None]
  - GLIOMA [None]
  - HEART RATE INCREASED [None]
  - HEREDITARY HAEMORRHAGIC TELANGIECTASIA [None]
  - HYPERHIDROSIS [None]
  - INFECTION [None]
  - JOINT EFFUSION [None]
  - LARGE INTESTINAL ULCER [None]
  - MELANOSIS COLI [None]
  - MENTAL STATUS CHANGES [None]
  - MUSCULOSKELETAL CHEST PAIN [None]
  - OSTEOPENIA [None]
  - PLATELET COUNT INCREASED [None]
  - PNEUMONIA [None]
  - POLYARTHRITIS [None]
  - PROTHROMBIN TIME SHORTENED [None]
  - PULMONARY HAEMORRHAGE [None]
  - PULMONARY MASS [None]
  - PYELONEPHRITIS [None]
  - RED BLOOD CELL SEDIMENTATION RATE INCREASED [None]
  - RENAL FAILURE [None]
  - RENAL FAILURE ACUTE [None]
  - SPLEEN DISORDER [None]
  - TRANSFUSION REACTION [None]
  - URINARY TRACT INFECTION [None]
  - WEGENER'S GRANULOMATOSIS [None]
